FAERS Safety Report 6315845-0 (Version None)
Quarter: 2009Q3

REPORT INFORMATION
  Report Type: 
  Country: None (occurrence: None)
  Receive Date: 20090820
  Receipt Date: 20070604
  Transmission Date: 20100115
  Serious: Yes (Hospitalization, Other)
  Sender: FDA-Public Use
  Company Number: US-ASTRAZENECA-2006UW08372

PATIENT
  Age: 14006 Day
  Sex: Female
  Weight: 143.3 kg

DRUGS (14)
  1. SEROQUEL [Suspect]
     Indication: INSOMNIA
     Dosage: 25 MG TO 100 MG
     Route: 048
     Dates: start: 20030113
  2. SEROQUEL [Suspect]
     Route: 048
     Dates: start: 20040401, end: 20041001
  3. ZOLOFT [Concomitant]
     Dosage: 50 MG TO 200 MG
     Dates: start: 20010117
  4. MOBIC [Concomitant]
     Dosage: 7.5 MG TO 15 MG
     Dates: start: 20020802
  5. LITHIUM/LITHOBID [Concomitant]
     Dosage: 300 MG DISPENSED
     Dates: start: 20020802
  6. ELAVIL [Concomitant]
     Dates: start: 20020802
  7. ADVAIR DISKUS/ADVAIR [Concomitant]
     Dosage: 250/50 PUFF TWO TIMES A DAY
     Dates: start: 20031112
  8. ALBUTEROL [Concomitant]
     Dosage: 90 MCG DISPENSED
     Dates: start: 20030527
  9. SEREVENT [Concomitant]
     Dosage: 21 MCG DISPENSED
     Dates: start: 20030529
  10. ALTACE [Concomitant]
     Dosage: 2.5 MG DISPENSED
     Dates: start: 20030228
  11. CARBIDOPA/LEVO [Concomitant]
     Dosage: 25/100 DISPENSED
     Dates: start: 20040311
  12. NAPROXEN [Concomitant]
     Dosage: 500 MG DISPENSED
     Dates: start: 20030107
  13. NEXIUM [Concomitant]
     Dosage: 40 MG DISPENSED
     Dates: start: 20040311
  14. WELLBUTRIN XL [Concomitant]
     Dosage: 300 MG DISPENSED

REACTIONS (7)
  - ASTHMA [None]
  - BRONCHITIS [None]
  - CHRONIC OBSTRUCTIVE PULMONARY DISEASE [None]
  - DIABETES MELLITUS [None]
  - DYSPNOEA [None]
  - EMPHYSEMA [None]
  - RESPIRATORY FAILURE [None]
